FAERS Safety Report 20078814 (Version 5)
Quarter: 2022Q1

REPORT INFORMATION
  Report Type: Report from Study
  Country: DE (occurrence: DE)
  Receive Date: 20211117
  Receipt Date: 20220304
  Transmission Date: 20220423
  Serious: Yes (Hospitalization, Other)
  Sender: FDA-Public Use
  Company Number: DE-INSMED, INC.-2021-08482-DE

PATIENT
  Age: 46 Year
  Sex: Male

DRUGS (2)
  1. ARIKAYCE [Suspect]
     Active Substance: AMIKACIN
     Indication: Mycobacterial infection
     Dosage: 590 MILLIGRAM, QD
     Route: 055
     Dates: start: 20210504, end: 20211102
  2. ARIKAYCE [Suspect]
     Active Substance: AMIKACIN
     Dosage: 590 MILLIGRAM, QD
     Route: 055
     Dates: start: 20211104, end: 20220111

REACTIONS (13)
  - Lung operation [Unknown]
  - General physical health deterioration [Not Recovered/Not Resolved]
  - Tongue discomfort [Recovered/Resolved]
  - Nasopharyngitis [Recovered/Resolved]
  - Exercise tolerance decreased [Recovered/Resolved]
  - Sputum increased [Recovered/Resolved]
  - Productive cough [Recovered/Resolved]
  - Productive cough [Unknown]
  - Cough [Not Recovered/Not Resolved]
  - Dysphonia [Recovered/Resolved]
  - Dyspnoea [Recovered/Resolved]
  - Dyspnoea [Recovered/Resolved]
  - Therapy interrupted [Unknown]

NARRATIVE: CASE EVENT DATE: 20210506
